FAERS Safety Report 24761811 (Version 1)
Quarter: 2024Q4

REPORT INFORMATION
  Report Type: Spontaneous
  Country: US (occurrence: US)
  Receive Date: 20241221
  Receipt Date: 20241221
  Transmission Date: 20250114
  Serious: Yes (Death, Hospitalization)
  Sender: ALEXION PHARMACEUTICALS
  Company Number: US-ASTRAZENECA-202412USA015650US

PATIENT

DRUGS (14)
  1. CRESTOR [Suspect]
     Active Substance: ROSUVASTATIN CALCIUM
  2. CRESTOR [Suspect]
     Active Substance: ROSUVASTATIN CALCIUM
     Route: 048
  3. CRESTOR [Suspect]
     Active Substance: ROSUVASTATIN CALCIUM
  4. CRESTOR [Suspect]
     Active Substance: ROSUVASTATIN CALCIUM
     Route: 048
  5. GLIPIZIDE [Suspect]
     Active Substance: GLIPIZIDE
  6. METFORMIN [Suspect]
     Active Substance: METFORMIN HYDROCHLORIDE
  7. AMLODIPINE [Suspect]
     Active Substance: AMLODIPINE BESYLATE
  8. LITHIUM [Suspect]
     Active Substance: LITHIUM
  9. LOSARTAN [Suspect]
     Active Substance: LOSARTAN
  10. CELECOXIB [Suspect]
     Active Substance: CELECOXIB
  11. PREGABALIN [Suspect]
     Active Substance: PREGABALIN
  12. SITAGLIPTIN [Suspect]
     Active Substance: SITAGLIPTIN
  13. PANTOPRAZOLE [Suspect]
     Active Substance: PANTOPRAZOLE
  14. ASPIRIN [Suspect]
     Active Substance: ASPIRIN

REACTIONS (1)
  - Toxicity to various agents [Fatal]
